FAERS Safety Report 7674527-3 (Version None)
Quarter: 2011Q3

REPORT INFORMATION
  Report Type: 
  Country: None (occurrence: None)
  Receive Date: 20110810
  Receipt Date: 20110729
  Transmission Date: 20111222
  Serious: Yes (Hospitalization, Other)
  Sender: FDA-Public Use
  Company Number: PHHY2011IE68293

PATIENT
  Sex: Female

DRUGS (1)
  1. EXELON [Suspect]
     Dosage: 4.6 MG, DAILY
     Route: 062

REACTIONS (3)
  - HERPES VIRUS INFECTION [None]
  - RASH [None]
  - ERYTHEMA MULTIFORME [None]
